FAERS Safety Report 6430688-5 (Version None)
Quarter: 2009Q4

REPORT INFORMATION
  Report Type: 
  Country: None (occurrence: None)
  Receive Date: 20091106
  Receipt Date: 20091029
  Transmission Date: 20100525
  Serious: Yes (Other)
  Sender: FDA-Public Use
  Company Number: US-BAYER-200916244BCC

PATIENT
  Age: 68 Year
  Sex: Female
  Weight: 146 kg

DRUGS (13)
  1. BAYER ASPIRIN EXTRA STRENGTH BACK + BODY PAIN [Suspect]
     Indication: BACK PAIN
     Dosage: TOOK UP TO 6 TABLETS
     Route: 048
     Dates: start: 20030101
  2. ALEVE [Suspect]
     Indication: BACK PAIN
     Dosage: TOOK 1 ALEVE 2 TO 4 TIMES A DAY OFF AND ON
     Route: 048
  3. GLIMEPIRIDE [Concomitant]
     Route: 065
  4. FLUOSENIDE [Concomitant]
     Route: 065
  5. CEPHALEXIN [Concomitant]
     Route: 065
  6. SPRING VALLEY IRON [Concomitant]
     Route: 065
  7. FLUOXETINE [Concomitant]
     Route: 065
  8. SIMVASTATIN [Concomitant]
     Route: 065
  9. CALCITRIOL [Concomitant]
     Route: 065
  10. ASPIRIN [Concomitant]
     Route: 065
  11. LISINOPRIL [Concomitant]
     Route: 065
  12. UNKNOWN HERBAL SUPPLEMENTS [Concomitant]
     Route: 065
  13. UKNOWN VITAMIN SUPPLEMENT [Concomitant]
     Route: 065

REACTIONS (3)
  - BLOOD POTASSIUM INCREASED [None]
  - MUSCULOSKELETAL DISCOMFORT [None]
  - RENAL DISORDER [None]
